FAERS Safety Report 11785117 (Version 1)
Quarter: 2015Q4

REPORT INFORMATION
  Report Type: Spontaneous
  Country: US (occurrence: None)
  Receive Date: 20151125
  Receipt Date: 20151125
  Transmission Date: 20160305
  Serious: Yes (Disabling)
  Sender: FDA-Public Use
  Company Number: None

PATIENT
  Age: 69 Year
  Sex: Female
  Weight: 68.95 kg

DRUGS (1)
  1. SPIRONOLACTONE 100 MG QUALITEST [Suspect]
     Active Substance: SPIRONOLACTONE
     Indication: PRODUCT USED FOR UNKNOWN INDICATION
     Route: 048
     Dates: start: 20150601, end: 20151124

REACTIONS (4)
  - Product substitution issue [None]
  - Blood test abnormal [None]
  - General symptom [None]
  - Disease recurrence [None]

NARRATIVE: CASE EVENT DATE: 20150601
